FAERS Safety Report 7591484-9 (Version None)
Quarter: 2011Q2

REPORT INFORMATION
  Report Type: 
  Country: None (occurrence: None)
  Receive Date: 20110627
  Receipt Date: 20110613
  Transmission Date: 20111010
  Serious: Yes (Hospitalization)
  Sender: FDA-Public Use
  Company Number: 2011MA006335

PATIENT
  Age: 14 Year
  Sex: Female

DRUGS (3)
  1. TROPATEPINE [Concomitant]
  2. LOXAPINE HCL [Concomitant]
  3. HALOPERIDOL LACTATE [Suspect]
     Indication: CATATONIA
     Dosage: 30 MG; QD

REACTIONS (40)
  - BLOOD PRESSURE INCREASED [None]
  - ECHOLALIA [None]
  - HYPERTHERMIA [None]
  - REFUSAL OF TREATMENT BY RELATIVE [None]
  - IMPAIRED REASONING [None]
  - IMPULSIVE BEHAVIOUR [None]
  - ANGER [None]
  - CATATONIA [None]
  - SLEEP DISORDER [None]
  - AUTONOMIC NERVOUS SYSTEM IMBALANCE [None]
  - MENDELSON'S SYNDROME [None]
  - PSYCHOMOTOR HYPERACTIVITY [None]
  - CONFUSIONAL STATE [None]
  - TACHYCARDIA [None]
  - ELECTROENCEPHALOGRAM ABNORMAL [None]
  - FATIGUE [None]
  - HYPERREFLEXIA [None]
  - MOOD ALTERED [None]
  - AGGRESSION [None]
  - TREMOR [None]
  - APHASIA [None]
  - COGNITIVE DISORDER [None]
  - VICTIM OF SEXUAL ABUSE [None]
  - GENERAL PHYSICAL HEALTH DETERIORATION [None]
  - STUPOR [None]
  - AGITATION [None]
  - DISEASE RECURRENCE [None]
  - DELUSION [None]
  - AMNESIA [None]
  - MUTISM [None]
  - ACUTE RESPIRATORY DISTRESS SYNDROME [None]
  - VERBIGERATION [None]
  - PREGNANCY [None]
  - EXPRESSIVE LANGUAGE DISORDER [None]
  - WAXY FLEXIBILITY [None]
  - DELIRIUM [None]
  - STARING [None]
  - MUSCLE RIGIDITY [None]
  - DRUG INTOLERANCE [None]
  - NEGATIVE THOUGHTS [None]
